FAERS Safety Report 20946501 (Version 2)
Quarter: 2022Q2

REPORT INFORMATION
  Report Type: Report from Study
  Country: IT (occurrence: IT)
  Receive Date: 20220610
  Receipt Date: 20220613
  Transmission Date: 20220721
  Serious: Yes (Other)
  Sender: FDA-Public Use
  Company Number: IT-PFIZER INC-202200788367

PATIENT
  Age: 70 Year
  Sex: Male

DRUGS (5)
  1. VINCRISTINE SULFATE [Suspect]
     Active Substance: VINCRISTINE SULFATE
     Indication: Non-Hodgkin^s lymphoma
     Dosage: 1.4 MG/M2, CYCLIC (DAY 2; EVERY 21 DAYS FOR 4-6 CYCLES)
  2. RITUXIMAB [Suspect]
     Active Substance: RITUXIMAB
     Indication: Non-Hodgkin^s lymphoma
     Dosage: 375 MG/M2, CYCLIC (DAY 1; EVERY 21 DAYS FOR 4-6 CYCLES)
  3. CYCLOPHOSPHAMIDE [Suspect]
     Active Substance: CYCLOPHOSPHAMIDE
     Indication: Non-Hodgkin^s lymphoma
     Dosage: 750 MG/M2, CYCLIC (DAY 2; EVERY 21 DAYS FOR 4-6 CYCLES)
  4. DOXORUBICIN [Suspect]
     Active Substance: DOXORUBICIN
     Indication: Non-Hodgkin^s lymphoma
     Dosage: 50 MG/M2, CYCLIC (DAY 2; EVERY 21 DAYS FOR 4-6 CYCLES; 1H INFUSION)
     Route: 042
  5. PREDNISONE [Suspect]
     Active Substance: PREDNISONE
     Indication: Non-Hodgkin^s lymphoma
     Dosage: 40 MG/M2, CYCLIC (DAY 1-5; EVERY 21 DAYS FOR 4-6 CYCLES)

REACTIONS (1)
  - Cardiac failure congestive [Recovered/Resolved]
